FAERS Safety Report 22155477 (Version 1)
Quarter: 2023Q1

REPORT INFORMATION
  Report Type: Spontaneous
  Country: US (occurrence: US)
  Receive Date: 20230330
  Receipt Date: 20230330
  Transmission Date: 20230417
  Serious: Yes (Hospitalization)
  Sender: FDA-Public Use
  Company Number: US-ELI_LILLY_AND_COMPANY-US202303008562

PATIENT
  Age: 37 Year
  Sex: Male

DRUGS (1)
  1. BASAGLAR [Suspect]
     Active Substance: INSULIN GLARGINE
     Indication: Product used for unknown indication
     Dosage: 20 U, EACH MORNING
     Route: 065

REACTIONS (5)
  - Pancreatic disorder [Unknown]
  - Gastrointestinal disorder [Unknown]
  - Gun shot wound [Unknown]
  - Spinal disorder [Unknown]
  - Accidental underdose [Unknown]

NARRATIVE: CASE EVENT DATE: 20230315
